FAERS Safety Report 25141299 (Version 1)
Quarter: 2025Q2

REPORT INFORMATION
  Report Type: Spontaneous
  Country: US (occurrence: None)
  Receive Date: 20250330
  Receipt Date: 20250330
  Transmission Date: 20250717
  Serious: Yes (Disabling)
  Sender: FDA-CTU
  Company Number: None

PATIENT
  Age: 79 Year
  Sex: Female
  Weight: 75.15 kg

DRUGS (10)
  1. CIPROFLOXACIN [Suspect]
     Active Substance: CIPROFLOXACIN
     Indication: Diarrhoea infectious
     Dosage: 1 TABLET EVERY 12 HOURS ORAL
     Route: 048
     Dates: start: 20241220, end: 20241225
  2. DILTIAZEM [Concomitant]
     Active Substance: DILTIAZEM
  3. HYDROCHLOROTHIAZIDE [Concomitant]
     Active Substance: HYDROCHLOROTHIAZIDE
  4. ASPIRIN [Concomitant]
     Active Substance: ASPIRIN
  5. TRAMADOL [Concomitant]
     Active Substance: TRAMADOL
  6. CALCIUM [Concomitant]
     Active Substance: CALCIUM
  7. ASPIRIN [Concomitant]
     Active Substance: ASPIRIN
  8. PROBIOTICS NOS [Concomitant]
     Active Substance: PROBIOTICS NOS
  9. ALLEGRA [Concomitant]
     Active Substance: FEXOFENADINE HYDROCHLORIDE
  10. OMEPRAZOLE [Concomitant]
     Active Substance: OMEPRAZOLE

REACTIONS (8)
  - Product prescribing issue [None]
  - Product use issue [None]
  - Tendon pain [None]
  - Peripheral swelling [None]
  - Gastrointestinal disorder [None]
  - Diarrhoea [None]
  - Neuropathy peripheral [None]
  - Arthropathy [None]

NARRATIVE: CASE EVENT DATE: 20250215
